FAERS Safety Report 11799352 (Version 2)
Quarter: 2016Q3

REPORT INFORMATION
  Report Type: Report from Study
  Country: US (occurrence: US)
  Receive Date: 20151203
  Receipt Date: 20160909
  Transmission Date: 20161109
  Serious: Yes (Other)
  Sender: FDA-Public Use
  Company Number: US-AMGEN-USASL2015125483

PATIENT
  Age: 75 Year
  Sex: Female

DRUGS (1)
  1. REPATHA [Suspect]
     Active Substance: EVOLOCUMAB
     Indication: BLOOD CHOLESTEROL ABNORMAL
     Dosage: 140 MG, Q2WK
     Route: 065
     Dates: start: 20151109

REACTIONS (6)
  - Fatigue [Unknown]
  - Pneumonia [Unknown]
  - Back pain [Unknown]
  - Drug dose omission [Unknown]
  - Bronchitis chronic [Unknown]
  - Malaise [Unknown]

NARRATIVE: CASE EVENT DATE: 20151109
